FAERS Safety Report 22657884 (Version 1)
Quarter: 2023Q2

REPORT INFORMATION
  Report Type: Spontaneous
  Country: BR (occurrence: BR)
  Receive Date: 20230630
  Receipt Date: 20230630
  Transmission Date: 20230721
  Serious: Yes (Hospitalization, Other)
  Sender: FDA-Public Use
  Company Number: BR-009507513-2306BRA012365

PATIENT
  Age: 92 Year
  Sex: Female
  Weight: 88 kg

DRUGS (1)
  1. PEMBROLIZUMAB [Suspect]
     Active Substance: PEMBROLIZUMAB
     Indication: Plasma cell myeloma
     Dosage: 292MG + SALINE SOLUTION 250ML
     Route: 042
     Dates: start: 20230622, end: 20230622

REACTIONS (6)
  - Cyanosis [Recovered/Resolved]
  - Cyanosis [Recovered/Resolved]
  - Cough [Recovered/Resolved]
  - Oxygen saturation decreased [Recovered/Resolved]
  - Throat tightness [Recovered/Resolved]
  - Blood pressure decreased [Recovered/Resolved]

NARRATIVE: CASE EVENT DATE: 20230622
